FAERS Safety Report 24253838 (Version 1)
Quarter: 2024Q3

REPORT INFORMATION
  Report Type: Spontaneous
  Country: CH (occurrence: CH)
  Receive Date: 20240827
  Receipt Date: 20240827
  Transmission Date: 20241016
  Serious: Yes (Hospitalization)
  Sender: PFIZER
  Company Number: None

PATIENT
  Age: 40 Year
  Sex: Female

DRUGS (4)
  1. DOSTINEX [Suspect]
     Active Substance: CABERGOLINE
     Dosage: 0.25 MG, 1X/DAY
     Route: 048
     Dates: start: 202405, end: 20240715
  2. DOSTINEX [Suspect]
     Active Substance: CABERGOLINE
     Dosage: 1X/WEEK
     Route: 048
     Dates: start: 2024
  3. ABILIFY [Concomitant]
     Active Substance: ARIPIPRAZOLE
     Dosage: UNK
  4. HALDOL [Concomitant]
     Active Substance: HALOPERIDOL
     Dosage: UNK

REACTIONS (7)
  - Odynophagia [Recovered/Resolved]
  - Dyspepsia [Recovered/Resolved]
  - Weight decreased [Recovered/Resolved]
  - Nausea [Recovered/Resolved]
  - Vomiting [Recovered/Resolved]
  - Decreased appetite [Recovered/Resolved]
  - Inappropriate schedule of product administration [Recovered/Resolved]

NARRATIVE: CASE EVENT DATE: 20240101
